FAERS Safety Report 20576853 (Version 1)
Quarter: 2022Q1

REPORT INFORMATION
  Report Type: Spontaneous
  Country: CN (occurrence: CN)
  Receive Date: 20220310
  Receipt Date: 20220310
  Transmission Date: 20220423
  Serious: Yes (Other)
  Sender: FDA-Public Use
  Company Number: CN-KOREA IPSEN Pharma-2022-06378

PATIENT
  Age: 45 Year
  Sex: Male

DRUGS (1)
  1. BOTULINUM TOXIN TYPE A [Suspect]
     Active Substance: BOTULINUM TOXIN TYPE A
     Indication: Skin wrinkling
     Dosage: NOT REPORTED
     Route: 065
     Dates: start: 20180907, end: 20180907

REACTIONS (3)
  - Vitreous detachment [Recovered/Resolved]
  - Ophthalmoplegia [Recovered/Resolved]
  - Vitreous opacities [Recovered/Resolved]

NARRATIVE: CASE EVENT DATE: 20180901
